FAERS Safety Report 20565689 (Version 4)
Quarter: 2022Q4

REPORT INFORMATION
  Report Type: Spontaneous
  Country: JP (occurrence: JP)
  Receive Date: 20220308
  Receipt Date: 20221206
  Transmission Date: 20230113
  Serious: No
  Sender: FDA-Public Use
  Company Number: JP-GLAXOSMITHKLINE-JP2022JPN039487

PATIENT

DRUGS (5)
  1. SOTROVIMAB [Suspect]
     Active Substance: SOTROVIMAB
     Indication: COVID-19
     Dosage: 500 MG/DAY
     Route: 041
     Dates: start: 20220226, end: 20220226
  2. IBUPROFEN PICONOL [Suspect]
     Active Substance: IBUPROFEN PICONOL
     Indication: Pruritus
     Dosage: ONCE TO TWICE DAILY
     Dates: start: 20220227
  3. IBUPROFEN PICONOL [Suspect]
     Active Substance: IBUPROFEN PICONOL
     Indication: Bacterial vaginosis
  4. FLAGYL [Suspect]
     Active Substance: METRONIDAZOLE\METRONIDAZOLE HYDROCHLORIDE
     Indication: Pruritus
     Dosage: 1 DF/DAY
     Dates: start: 20220227, end: 20220301
  5. FLAGYL [Suspect]
     Active Substance: METRONIDAZOLE\METRONIDAZOLE HYDROCHLORIDE
     Indication: Bacterial vaginosis

REACTIONS (1)
  - Exposure during pregnancy [Unknown]
